FAERS Safety Report 5510504-6 (Version None)
Quarter: 2007Q4

REPORT INFORMATION
  Report Type: 
  Country: None (occurrence: None)
  Receive Date: 20071108
  Receipt Date: 20071029
  Transmission Date: 20080405
  Serious: Yes (Other)
  Sender: FDA-Public Use
  Company Number: US-SHR-US-2007-033575

PATIENT
  Age: 54 Year
  Sex: Female
  Weight: 126.98 kg

DRUGS (11)
  1. BETASERON [Suspect]
     Indication: SECONDARY PROGRESSIVE MULTIPLE SCLEROSIS
     Dosage: 8 MIU, EVERY 2D
     Route: 058
     Dates: start: 20040604
  2. NEURONTIN [Concomitant]
     Indication: MUSCLE SPASMS
     Dosage: 300 MG, 3X/DAY
     Dates: start: 20030101
  3. ZOLOFT [Concomitant]
     Indication: DEPRESSION
     Dosage: 50 MG, 1X/DAY
     Dates: start: 20050101
  4. SINGULAIR [Concomitant]
     Indication: MULTIPLE ALLERGIES
     Dosage: 25 NG, 1X/DAY
     Dates: start: 20060101
  5. IBUPROFEN [Concomitant]
     Indication: DISCOMFORT
     Dosage: 800 MG, 1X/DAY
     Dates: start: 20070401
  6. CELEBREX [Concomitant]
     Indication: ARTHRITIS
     Dosage: 300 MG/D, UNK
  7. PROCARDIA [Concomitant]
     Indication: BLOOD PRESSURE
     Dosage: 50 MG/D, UNK
  8. MELOXICAM [Concomitant]
     Indication: ARTHRITIS
     Dosage: 15 MG/D, UNK
  9. CLONIDINE [Concomitant]
     Indication: BLOOD PRESSURE
     Dosage: 2 MG/D, UNK
  10. LORAZEPAM [Concomitant]
     Indication: NERVOUS SYSTEM DISORDER
     Dosage: 1 MG, 2X/DAY
  11. VESICARE [Concomitant]
     Dosage: 5 MG/D, UNK

REACTIONS (4)
  - BLINDNESS [None]
  - CATARACT OPERATION [None]
  - GLAUCOMA [None]
  - OPHTHALMIC FLUID DRAINAGE [None]
